FAERS Safety Report 17251804 (Version 1)
Quarter: 2020Q1

REPORT INFORMATION
  Report Type: Spontaneous
  Country: DE (occurrence: DE)
  Receive Date: 20200109
  Receipt Date: 20200109
  Transmission Date: 20200409
  Serious: Yes (Hospitalization)
  Sender: FDA-Public Use
  Company Number: DE-TEVA-2020-DE-1163379

PATIENT
  Age: 1 Decade
  Sex: Female

DRUGS (8)
  1. ARSENIC TRIOXIDE. [Suspect]
     Active Substance: ARSENIC TRIOXIDE
     Dosage: FOR A PERIOD OF APPROXIMATELY 10 WEEKS
     Route: 048
  2. ACTINOMYCIN D [Concomitant]
     Active Substance: DACTINOMYCIN
     Indication: EPENDYMOMA MALIGNANT
     Route: 065
  3. ADRIAMYCIN [Concomitant]
     Active Substance: DOXORUBICIN HYDROCHLORIDE
     Indication: EPENDYMOMA MALIGNANT
     Route: 065
  4. ARA-C [Concomitant]
     Active Substance: CYTARABINE
     Indication: EPENDYMOMA MALIGNANT
     Dosage: ADDITIONAL INFO: ROUTE: INTRAVENTRICULAR
     Route: 050
  5. CERITINIB [Suspect]
     Active Substance: CERITINIB
     Indication: EPENDYMOMA MALIGNANT
     Dosage: 350 MG/M2 BODY SURFACE AREA, ACTION TAKEN: SHE REFUSED THE PERIODIC INTAKE OF CERITINIB
     Route: 065
  6. ETOPOSIDE-GRY [Concomitant]
     Indication: EPENDYMOMA MALIGNANT
     Route: 065
  7. ARSENIC TRIOXIDE. [Suspect]
     Active Substance: ARSENIC TRIOXIDE
     Indication: EPENDYMOMA MALIGNANT
     Dosage: FOR ONE WEEK
     Route: 042
  8. VINCRISTINE [Concomitant]
     Active Substance: VINCRISTINE
     Indication: EPENDYMOMA MALIGNANT
     Route: 065

REACTIONS (7)
  - Treatment noncompliance [Unknown]
  - Necrosis [Recovered/Resolved]
  - Cerebral haemorrhage [Recovered/Resolved]
  - Nausea [Unknown]
  - Off label use [Unknown]
  - Pain in extremity [Unknown]
  - Cerebral disorder [Recovered/Resolved]
